FAERS Safety Report 6770486-6 (Version None)
Quarter: 2010Q2

REPORT INFORMATION
  Report Type: 
  Country: None (occurrence: None)
  Receive Date: 20100615
  Receipt Date: 20100604
  Transmission Date: 20101027
  Serious: Yes (Hospitalization)
  Sender: FDA-Public Use
  Company Number: GB-GILEAD-E2B_00000740

PATIENT
  Sex: Male

DRUGS (14)
  1. AMBRISENTAN [Suspect]
     Indication: PULMONARY ARTERIAL HYPERTENSION
     Dosage: 5MG PER DAY
     Route: 048
     Dates: start: 20091102
  2. AMBRISENTAN [Suspect]
     Route: 048
     Dates: start: 20090901, end: 20091102
  3. SERETIDE [Concomitant]
     Indication: DRUG USE FOR UNKNOWN INDICATION
     Dosage: 125PUFF TWICE PER DAY
     Route: 055
     Dates: start: 20091029
  4. LEVOTHYROXINE SODIUM [Concomitant]
     Indication: HYPOTHYROIDISM
     Dosage: 125MCG PER DAY
     Route: 048
     Dates: start: 20090708
  5. VERAPAMIL [Concomitant]
     Indication: SUPRAVENTRICULAR TACHYCARDIA
     Dosage: 80MG THREE TIMES PER DAY
     Route: 048
     Dates: start: 20090829
  6. OMEPRAZOLE [Concomitant]
     Indication: GASTROOESOPHAGEAL REFLUX DISEASE
     Dosage: 40MG PER DAY
     Route: 048
     Dates: start: 20090830
  7. WARFARIN [Concomitant]
     Indication: PULMONARY EMBOLISM
     Dosage: 5MG PER DAY
     Route: 048
     Dates: start: 20090609, end: 20100113
  8. WARFARIN [Concomitant]
     Dosage: 5MG PER DAY
     Route: 048
     Dates: start: 20100120, end: 20100326
  9. WARFARIN [Concomitant]
     Route: 048
     Dates: start: 20100327
  10. CITALOPRAM HYDROBROMIDE [Concomitant]
     Indication: DEPRESSION
     Dosage: 20MG PER DAY
     Route: 048
     Dates: start: 20091220
  11. SILDENAFIL [Concomitant]
     Indication: PULMONARY ARTERIAL HYPERTENSION
     Dosage: 20MG THREE TIMES PER DAY
     Route: 048
     Dates: start: 20100108
  12. HEPARIN [Concomitant]
     Indication: PULMONARY EMBOLISM
     Route: 042
     Dates: start: 20100327, end: 20100327
  13. FERROUS SULFATE TAB [Concomitant]
     Indication: ANAEMIA
     Route: 048
  14. ACETAMINOPHEN AND CODEINE PHOSPHATE [Concomitant]
     Indication: ADVERSE DRUG REACTION
     Route: 048
     Dates: start: 20100301

REACTIONS (2)
  - HAEMOPTYSIS [None]
  - SUPRAVENTRICULAR TACHYCARDIA [None]
